FAERS Safety Report 23124004 (Version 1)
Quarter: 2023Q4

REPORT INFORMATION
  Report Type: Spontaneous
  Country: CH (occurrence: CH)
  Receive Date: 20231030
  Receipt Date: 20231030
  Transmission Date: 20240109
  Serious: Yes (Life-Threatening, Hospitalization)
  Sender: FDA-Public Use
  Company Number: 23_00026133(0)

PATIENT
  Age: 50 Year
  Sex: Female

DRUGS (7)
  1. DEXMEDETOMIDINE HYDROCHLORIDE [Suspect]
     Active Substance: DEXMEDETOMIDINE HYDROCHLORIDE
     Indication: Anaesthesia
     Dosage: 1 DOSAGE FORM, 24 HR
     Route: 051
     Dates: start: 20230912, end: 20230912
  2. ROCURONIUM BROMIDE [Suspect]
     Active Substance: ROCURONIUM BROMIDE
     Indication: Anaesthesia
     Dosage: 70 MILLIGRAM, 24 HR
     Route: 051
     Dates: start: 20230912, end: 20230912
  3. FENTANYL CITRATE [Suspect]
     Active Substance: FENTANYL CITRATE
     Indication: Product used for unknown indication
     Dosage: 1 DOSAGE FORM, 24 HR
     Route: 051
     Dates: start: 20230912, end: 20230912
  4. PROPOFOL [Suspect]
     Active Substance: PROPOFOL
     Indication: Anaesthesia
     Dosage: 1 DOSAGE FORM, 24 HR
     Route: 051
     Dates: start: 20230912, end: 20230912
  5. LIDOCAINE HYDROCHLORIDE [Suspect]
     Active Substance: DEXTROSE MONOHYDRATE\EPINEPHRINE\EPINEPHRINE BITARTRATE\LIDOCAINE\LIDOCAINE HYDROCHLORIDE\LIDOCAINE
     Indication: Anaesthesia
     Dosage: 5 MILLIGRAM, (85 MG,24 HR)
     Route: 051
     Dates: start: 20230912, end: 20230912
  6. KETAMINE HYDROCHLORIDE [Suspect]
     Active Substance: KETAMINE HYDROCHLORIDE
     Indication: Product used for unknown indication
     Dosage: 1 DOSAGE FORM, 24 HR
     Route: 051
     Dates: start: 20230912, end: 20230912
  7. MAGNESIUM SULFATE [Suspect]
     Active Substance: MAGNESIUM SULFATE\MAGNESIUM SULFATE HEPTAHYDRATE
     Indication: Product used for unknown indication
     Dosage: 1 DOSAGE FORM, 24 HR
     Route: 051
     Dates: start: 20230912, end: 20230912

REACTIONS (2)
  - Anaphylactic shock [Recovered/Resolved]
  - Type I hypersensitivity [Recovered/Resolved]

NARRATIVE: CASE EVENT DATE: 20230912
